FAERS Safety Report 9210104 (Version 1)
Quarter: 2013Q2

REPORT INFORMATION
  Report Type: Report from Study
  Country: IL (occurrence: IL)
  Receive Date: 20130404
  Receipt Date: 20130404
  Transmission Date: 20140414
  Serious: Yes (Death, Other)
  Sender: FDA-Public Use
  Company Number: IL-ROCHE-1023671

PATIENT
  Sex: Female

DRUGS (2)
  1. BEVACIZUMAB [Suspect]
     Indication: BREAST CANCER
     Route: 065
  2. PACLITAXEL [Suspect]
     Indication: BREAST CANCER
     Route: 065

REACTIONS (22)
  - Haemorrhage [Fatal]
  - Fatigue [Unknown]
  - Diarrhoea [Unknown]
  - Hypertension [Unknown]
  - Palmar-plantar erythrodysaesthesia syndrome [Unknown]
  - Epistaxis [Unknown]
  - Nausea [Unknown]
  - Neutropenia [Unknown]
  - Alopecia [Unknown]
  - Neuropathy peripheral [Unknown]
  - Asthenia [Unknown]
  - Bone pain [Unknown]
  - Decreased appetite [Unknown]
  - Headache [Unknown]
  - Vomiting [Unknown]
  - Dyspnoea [Unknown]
  - Nail disorder [Unknown]
  - Anaemia [Unknown]
  - Leukopenia [Unknown]
  - Dizziness [Unknown]
  - Polyneuropathy [Unknown]
  - Peripheral sensory neuropathy [Unknown]
